FAERS Safety Report 17489817 (Version 1)
Quarter: 2020Q1

REPORT INFORMATION
  Report Type: Spontaneous
  Country: US (occurrence: US)
  Receive Date: 20200303
  Receipt Date: 20200303
  Transmission Date: 20200409
  Serious: No
  Sender: FDA-Public Use
  Company Number: US-AKORN PHARMACEUTICALS-2019AKN02255

PATIENT
  Age: 33 Year
  Sex: Female
  Weight: 61.22 kg

DRUGS (4)
  1. MYORISAN [Suspect]
     Active Substance: ISOTRETINOIN
     Indication: ACNE
     Dosage: 40 MG, 2X/DAY (ALTERNATING WITH 40 MG ONCE A DAY)
     Dates: start: 20190529, end: 20190921
  2. MYORISAN [Suspect]
     Active Substance: ISOTRETINOIN
     Dosage: 40 MG, 1X/DAY (ALTERNATING WITH 40 MG 2X/DAY)
     Dates: start: 20190529, end: 20190921
  3. MOBIC [Concomitant]
     Active Substance: MELOXICAM
  4. MULTIVITAMIN [Concomitant]
     Active Substance: VITAMINS

REACTIONS (4)
  - Spinal pain [Recovered/Resolved]
  - Off label use [Recovered/Resolved]
  - Intentional dose omission [Recovered/Resolved]
  - Drug ineffective [Recovered/Resolved]

NARRATIVE: CASE EVENT DATE: 20190529
